FAERS Safety Report 8059956-0 (Version None)
Quarter: 2012Q1

REPORT INFORMATION
  Report Type: 
  Country: None (occurrence: None)
  Receive Date: 20120120
  Receipt Date: 20120112
  Transmission Date: 20120608
  Serious: Yes (Other)
  Sender: FDA-Public Use
  Company Number: PHEH2011US010534

PATIENT
  Sex: Female

DRUGS (9)
  1. TEKTURNA [Suspect]
     Dosage: 150 MG, ONCE A DAY
  2. TEKAMLO [Suspect]
     Dosage: 300/5 MG ONCE A DAY
  3. TOPROL-XL [Suspect]
     Dosage: 100 MG, QD
  4. ALLOPURINOL [Suspect]
     Dosage: 150 MG, QD
  5. THYROID THERAPY [Suspect]
     Dosage: UNK UKN, UNK
  6. DIOVAN HCT [Suspect]
     Dosage: 320/25 MG ONCE A DAY
  7. METFORMIN HYDROCHLORIDE [Suspect]
     Dosage: 150 MG, UNK
  8. VITAMIN D [Suspect]
     Dosage: 1000 IU, UNK
  9. ARIMIDEX [Suspect]
     Dosage: UNK UKN, UNK

REACTIONS (9)
  - HYPOAESTHESIA [None]
  - VASODILATATION [None]
  - BREAST CANCER [None]
  - ALOPECIA [None]
  - HYPOTHYROIDISM [None]
  - POOR QUALITY SLEEP [None]
  - BLOOD URIC ACID INCREASED [None]
  - DIABETES MELLITUS [None]
  - OSTEOPOROSIS [None]
